FAERS Safety Report 10919439 (Version 1)
Quarter: 2015Q1

REPORT INFORMATION
  Report Type: Spontaneous
  Country: US (occurrence: US)
  Receive Date: 20150316
  Receipt Date: 20150316
  Transmission Date: 20150721
  Serious: Yes (Hospitalization, Other)
  Sender: FDA-Public Use
  Company Number: US-GLAXOSMITHKLINE-US2015033762

PATIENT
  Sex: Female

DRUGS (10)
  1. FOLIC ACID. [Concomitant]
     Active Substance: FOLIC ACID
  2. RITUXAN [Concomitant]
     Active Substance: RITUXIMAB
  3. LAMOTRIGINE. [Suspect]
     Active Substance: LAMOTRIGINE
     Indication: BIPOLAR DISORDER
     Dosage: 150 MG, QD
     Route: 048
  4. PROTONIX [Concomitant]
     Active Substance: PANTOPRAZOLE SODIUM
  5. LAMICTAL [Suspect]
     Active Substance: LAMOTRIGINE
  6. ARAVA [Concomitant]
     Active Substance: LEFLUNOMIDE
  7. LAMICTAL [Suspect]
     Active Substance: LAMOTRIGINE
     Indication: BIPOLAR DISORDER
     Dosage: 150 MG, QD
     Route: 048
  8. FISH OIL [Concomitant]
     Active Substance: FISH OIL
  9. LAMICTAL [Suspect]
     Active Substance: LAMOTRIGINE
  10. ZANTAC [Concomitant]
     Active Substance: RANITIDINE HYDROCHLORIDE

REACTIONS (10)
  - Pain in extremity [Not Recovered/Not Resolved]
  - Palpitations [Not Recovered/Not Resolved]
  - Gallbladder disorder [Recovered/Resolved]
  - Rocky mountain spotted fever [Recovered/Resolved]
  - Dyspepsia [Not Recovered/Not Resolved]
  - Oedema [Not Recovered/Not Resolved]
  - Influenza like illness [Not Recovered/Not Resolved]
  - Chest pain [Recovered/Resolved]
  - Drug ineffective [Recovered/Resolved]
  - Dysphagia [Unknown]

NARRATIVE: CASE EVENT DATE: 2012
